FAERS Safety Report 24169935 (Version 1)
Quarter: 2024Q3

REPORT INFORMATION
  Report Type: Spontaneous
  Country: GB (occurrence: GB)
  Receive Date: 20240803
  Receipt Date: 20240803
  Transmission Date: 20241017
  Serious: Yes (Disabling)
  Sender: TEVA
  Company Number: GB-MHRA-TPP1617971C9031235YC1721662298721

PATIENT
  Age: 40 Year
  Sex: Male
  Weight: 105 kg

DRUGS (14)
  1. NAPROXEN [Suspect]
     Active Substance: NAPROXEN
     Indication: Ill-defined disorder
     Dosage: TPP YC - PLEASE RECLASSIFY
     Route: 065
     Dates: start: 20240626
  2. OXYCODONE HYDROCHLORIDE [Concomitant]
     Active Substance: OXYCODONE HYDROCHLORIDE
     Indication: Ill-defined disorder
     Dosage: TAKE ONE ONCE OR TWICEA DAY FOR BREAK THROUGH PAIN, TPP YC - PLEASE RECLASSIFY
     Dates: start: 20240423, end: 20240507
  3. ACETAMINOPHEN [Concomitant]
     Active Substance: ACETAMINOPHEN
     Indication: Ill-defined disorder
     Dosage: TPP YC - PLEASE RECLASSIFY
     Dates: start: 20240221
  4. QUININE SULFATE [Concomitant]
     Active Substance: QUININE SULFATE
     Indication: Ill-defined disorder
     Dosage: AT BEDTIME., TPP YC - PLEASE RECLASSIFY
     Dates: start: 20240712
  5. OXYCODONE HYDROCHLORIDE [Concomitant]
     Active Substance: OXYCODONE HYDROCHLORIDE
     Indication: Ill-defined disorder
     Dosage: TPP YC - PLEASE RECLASSIFY
     Dates: start: 20231116
  6. HYDROXYZINE [Concomitant]
     Active Substance: HYDROXYZINE HYDROCHLORIDE
     Indication: Ill-defined disorder
     Dosage: TIME INTERVAL: AS NECESSARY: ONE OR TWO AT NIGHT WHEN NEEDED, TPP YC - PLEASE RECLASSIFY
     Dates: start: 20240221
  7. SENNA [Concomitant]
     Active Substance: SENNA LEAF\SENNOSIDES\SENNOSIDES A AND B
     Indication: Ill-defined disorder
     Dosage: TAKE 1 OR 2 AT NIGHT, TPP YC - PLEASE RECLASSIFY
     Dates: start: 20240221
  8. DULOXETINE [Concomitant]
     Active Substance: DULOXETINE
     Indication: Ill-defined disorder
     Dosage: 1 OD(TOTAL DOSE OF 90 MG OD), TPP YC - PLEASE RECLASSIFY
     Dates: start: 20231227
  9. CHOLECALCIFEROL [Concomitant]
     Active Substance: CHOLECALCIFEROL
     Indication: Ill-defined disorder
     Dosage: TPP YC - PLEASE RECLASSIFY
     Dates: start: 20240221
  10. AMITRIPTYLINE HYDROCHLORIDE [Concomitant]
     Active Substance: AMITRIPTYLINE HYDROCHLORIDE
     Indication: Ill-defined disorder
     Dosage: TAKE ONE OR TWO AT NIGHT, TPP YC - PLEASE RECLASSIFY
     Dates: start: 20240130
  11. GABAPENTIN [Concomitant]
     Active Substance: GABAPENTIN
     Indication: Ill-defined disorder
     Dosage: TPP YC - PLEASE RECLASSIFY
     Dates: start: 20240221
  12. OMEPRAZOLE [Concomitant]
     Active Substance: OMEPRAZOLE
     Indication: Ill-defined disorder
     Dosage: TPP YC - PLEASE RECLASSIFY
     Dates: start: 20230726
  13. ATORVASTATIN [Concomitant]
     Active Substance: ATORVASTATIN
     Indication: Ill-defined disorder
     Dosage: TPP YC - PLEASE RECLASSIFY
     Dates: start: 20240221
  14. TRAMADOL [Concomitant]
     Active Substance: TRAMADOL\TRAMADOL HYDROCHLORIDE
     Indication: Ill-defined disorder
     Dosage: TIME INTERVAL: AS NECESSARY: TAKE 1 OR 2 WHEN NEEDED FOR SEVER PAIN A DAY., TPP YC - PLEASE RECLA...
     Dates: start: 20240626

REACTIONS (1)
  - Epigastric discomfort [Not Recovered/Not Resolved]
